FAERS Safety Report 15575351 (Version 2)
Quarter: 2018Q4

REPORT INFORMATION
  Report Type: Spontaneous
  Country: FR (occurrence: FR)
  Receive Date: 20181101
  Receipt Date: 20181219
  Transmission Date: 20190205
  Serious: Yes (Hospitalization)
  Sender: FDA-Public Use
  Company Number: FR-ASTRAZENECA-2018SF40480

PATIENT
  Age: 40 Year
  Sex: Female
  Weight: 58.5 kg

DRUGS (9)
  1. TERALITHE [Suspect]
     Active Substance: LITHIUM CARBONATE
     Indication: TOXICITY TO VARIOUS AGENTS
     Dosage: 2.0G ONCE/SINGLE ADMINISTRATION
     Route: 048
     Dates: start: 20181006, end: 20181006
  2. FLUOXETINE HYDROCHLORIDE. [Concomitant]
     Active Substance: FLUOXETINE HYDROCHLORIDE
  3. ZOPICLONE [Concomitant]
     Active Substance: ZOPICLONE
  4. LAMICTAL [Suspect]
     Active Substance: LAMOTRIGINE
     Indication: TOXICITY TO VARIOUS AGENTS
     Dosage: 500.0MG ONCE/SINGLE ADMINISTRATION
     Route: 048
     Dates: start: 20181006, end: 20181006
  5. TEMESTA [Concomitant]
  6. LYRICA [Suspect]
     Active Substance: PREGABALIN
     Indication: TOXICITY TO VARIOUS AGENTS
     Dosage: ONCE/SINGLE ADMINISTRATION
     Route: 048
     Dates: start: 20181006, end: 20181006
  7. XEROQUEL LP [Suspect]
     Active Substance: QUETIAPINE FUMARATE
     Indication: TOXICITY TO VARIOUS AGENTS
     Dosage: 600.0MG ONCE/SINGLE ADMINISTRATION
     Route: 048
     Dates: start: 20181006, end: 20181006
  8. RIVOTRIL [Suspect]
     Active Substance: CLONAZEPAM
     Indication: TOXICITY TO VARIOUS AGENTS
     Dosage: 20.0GTT ONCE/SINGLE ADMINISTRATION
     Route: 048
     Dates: start: 20181006, end: 20181006
  9. PROPRANOLOL [Concomitant]
     Active Substance: PROPRANOLOL HYDROCHLORIDE

REACTIONS (4)
  - Headache [Recovered/Resolved]
  - Antipsychotic drug level increased [Recovered/Resolved]
  - Toxicity to various agents [Recovered/Resolved]
  - Somnolence [Recovered/Resolved]

NARRATIVE: CASE EVENT DATE: 20181006
